FAERS Safety Report 15483263 (Version 1)
Quarter: 2018Q4

REPORT INFORMATION
  Report Type: Spontaneous
  Country: US (occurrence: US)
  Receive Date: 20181010
  Receipt Date: 20181010
  Transmission Date: 20190205
  Serious: No
  Sender: FDA-Public Use
  Company Number: None

PATIENT
  Age: 71 Year
  Sex: Female

DRUGS (11)
  1. CLARITIN [Concomitant]
     Active Substance: LORATADINE
  2. VITAMIN D [Concomitant]
     Active Substance: CHOLECALCIFEROL
  3. LAMOTRIGINE. [Suspect]
     Active Substance: LAMOTRIGINE
     Indication: EPILEPSY
     Dosage: ?          QUANTITY:1 TABLET(S);?
     Route: 048
     Dates: start: 20181002, end: 20181009
  4. ZINC. [Concomitant]
     Active Substance: ZINC
  5. LOSARTAN. [Concomitant]
     Active Substance: LOSARTAN
  6. MAGNESIUM [Concomitant]
     Active Substance: MAGNESIUM
  7. PRAVASTATIN. [Concomitant]
     Active Substance: PRAVASTATIN
  8. CALCIUM [Concomitant]
     Active Substance: CALCIUM
  9. METOPROLOL. [Concomitant]
     Active Substance: METOPROLOL
  10. NORVASC [Concomitant]
     Active Substance: AMLODIPINE BESYLATE
  11. LEVOTHYROXINE. [Concomitant]
     Active Substance: LEVOTHYROXINE

REACTIONS (9)
  - Insomnia [None]
  - Pruritus [None]
  - Chills [None]
  - Anxiety [None]
  - Agitation [None]
  - Headache [None]
  - Burning sensation [None]
  - Muscle spasms [None]
  - Sensory disturbance [None]

NARRATIVE: CASE EVENT DATE: 20181006
